FAERS Safety Report 8549140-6 (Version None)
Quarter: 2012Q3

REPORT INFORMATION
  Report Type: 
  Country: None (occurrence: None)
  Receive Date: 20120730
  Receipt Date: 20120725
  Transmission Date: 20120928
  Serious: Yes (Other)
  Sender: FDA-Public Use
  Company Number: US-PFIZER INC-2012180396

PATIENT
  Sex: Female
  Weight: 83 kg

DRUGS (9)
  1. DIGOXIN [Concomitant]
     Dosage: 0.625 MG, 2X/DAY
  2. ARIMIDEX [Concomitant]
     Dosage: 1 MG, 1X/DAY
  3. PRADAXA [Concomitant]
     Dosage: 150 MG, 2X/DAY
  4. PRISTIQ [Suspect]
     Indication: ANXIETY
  5. CARVEDILOL [Concomitant]
     Dosage: 12.5 MG, 2X/DAY
  6. ABILIFY [Concomitant]
     Dosage: 2 MG, 1X/DAY
  7. HYZAAR [Concomitant]
     Dosage: 100/25 MG, 1X/DAY
  8. PRISTIQ [Suspect]
     Indication: DEPRESSION
     Dosage: 50 MG, 1X/DAY
     Route: 048
     Dates: start: 20120401
  9. LIPITOR [Concomitant]
     Dosage: 10 MG, 1X/DAY

REACTIONS (4)
  - TONGUE BLISTERING [None]
  - ORAL MUCOSAL BLISTERING [None]
  - STOMATITIS [None]
  - TONGUE ERUPTION [None]
